FAERS Safety Report 10041844 (Version 2)
Quarter: 2014Q1

REPORT INFORMATION
  Report Type: Spontaneous
  Country: PL (occurrence: PL)
  Receive Date: 20140327
  Receipt Date: 20140328
  Transmission Date: 20141002
  Serious: Yes (Hospitalization)
  Sender: FDA-Public Use
  Company Number: PL-JNJFOC-20140313678

PATIENT
  Age: 6 Year
  Sex: Female
  Weight: 16.5 kg

DRUGS (7)
  1. REMICADE [Suspect]
     Indication: CROHN^S DISEASE
     Route: 042
     Dates: start: 20140228
  2. REMICADE [Suspect]
     Indication: CROHN^S DISEASE
     Route: 042
     Dates: start: 20140314, end: 20140314
  3. METYPRED [Concomitant]
     Indication: CROHN^S DISEASE
     Route: 065
     Dates: start: 20140306
  4. VANCOMYCIN [Concomitant]
     Indication: INFECTION
     Route: 065
     Dates: start: 20140306, end: 20140313
  5. VANCOMYCIN [Concomitant]
     Indication: CROHN^S DISEASE
     Route: 065
     Dates: start: 20140306, end: 20140313
  6. HYDROCORTISONE [Concomitant]
     Indication: PREMEDICATION
     Route: 065
     Dates: start: 20140314
  7. POLPRAZOL [Concomitant]
     Indication: PROPHYLAXIS
     Route: 065
     Dates: start: 20140306

REACTIONS (9)
  - Dyspnoea [Recovered/Resolved]
  - Tachycardia [Recovered/Resolved]
  - Oxygen saturation decreased [Recovered/Resolved]
  - Anxiety [Recovered/Resolved]
  - Abdominal pain [Recovered/Resolved]
  - Defaecation urgency [Recovered/Resolved]
  - Skin disorder [Not Recovered/Not Resolved]
  - Infusion related reaction [Recovered/Resolved]
  - Hyperhidrosis [Recovered/Resolved]
